FAERS Safety Report 5122116-7 (Version None)
Quarter: 2006Q4

REPORT INFORMATION
  Report Type: 
  Country: None (occurrence: None)
  Receive Date: 20061003
  Receipt Date: 20060309
  Transmission Date: 20070319
  Serious: Yes (Other)
  Sender: FDA-Public Use
  Company Number: 2006VX000296

PATIENT
  Age: 45 Year
  Sex: Female
  Weight: 50.3493 kg

DRUGS (6)
  1. INTERFERON ALFACON-1 [Suspect]
     Indication: HEPATITIS C
     Dosage: 15 MG;QD;SC
     Route: 058
     Dates: start: 20050201
  2. ARANESP [Suspect]
     Indication: ANAEMIA OF CHRONIC DISEASE
     Dosage: 200 UG; QOW;
     Dates: start: 20050301
  3. NEUPOGEN [Concomitant]
  4. PEGASYS [Suspect]
     Indication: HEPATITIS C
     Dosage: 180 UG;SC
     Route: 058
     Dates: start: 20060601
  5. REBETOL [Suspect]
     Indication: HEPATITIS C
     Dosage: 800 MG;
     Dates: start: 20050201
  6. RIBAVIRIN [Suspect]
     Indication: ANAEMIA

REACTIONS (3)
  - ANAEMIA [None]
  - DRUG INEFFECTIVE [None]
  - PORPHYRIA NON-ACUTE [None]
